FAERS Safety Report 10033689 (Version 1)
Quarter: 2014Q1

REPORT INFORMATION
  Report Type: Spontaneous
  Country: US (occurrence: US)
  Receive Date: 20140325
  Receipt Date: 20140325
  Transmission Date: 20141002
  Serious: No
  Sender: FDA-Public Use
  Company Number: US-BIOGENIDEC-2014BI024090

PATIENT
  Age: 60 Year
  Sex: Female

DRUGS (13)
  1. TECFIDERA [Suspect]
     Indication: MULTIPLE SCLEROSIS
     Route: 048
     Dates: start: 20130626, end: 20130702
  2. TECFIDERA [Suspect]
     Indication: MULTIPLE SCLEROSIS
     Route: 048
     Dates: start: 20130703
  3. SAVELLA [Concomitant]
  4. CYCLOBENZAPRINE [Concomitant]
  5. NABUMETONE [Concomitant]
  6. HYDROXYZINE [Concomitant]
  7. ATENOLOL [Concomitant]
  8. AMPYRA [Concomitant]
  9. GABAPENTIN [Concomitant]
  10. VENLAFAXINE [Concomitant]
  11. RISPERIDONE [Concomitant]
  12. SULINDAC [Concomitant]
  13. HYDROCODONE APAP [Concomitant]

REACTIONS (1)
  - Somnolence [Unknown]
